FAERS Safety Report 15460021 (Version 3)
Quarter: 2018Q4

REPORT INFORMATION
  Report Type: Report from Study
  Country: ID (occurrence: ID)
  Receive Date: 20181003
  Receipt Date: 20181211
  Transmission Date: 20190204
  Serious: Yes (Death, Hospitalization, Other)
  Sender: FDA-Public Use
  Company Number: ID-BAYER-2018-171206

PATIENT
  Age: 49 Year
  Sex: Female

DRUGS (2)
  1. NEXAVAR [Suspect]
     Active Substance: SORAFENIB
     Indication: HEPATOCELLULAR CARCINOMA
     Dosage: DAILY DOSE 400 MG
     Route: 048
     Dates: start: 20180811
  2. NEXAVAR [Suspect]
     Active Substance: SORAFENIB
     Indication: HEPATOCELLULAR CARCINOMA
     Dosage: 200 MG, BID
     Route: 048
     Dates: start: 201808, end: 20180908

REACTIONS (11)
  - Blood albumin decreased [Recovered/Resolved with Sequelae]
  - Eating disorder [Recovering/Resolving]
  - Dyspnoea [None]
  - Death [Fatal]
  - Asthenia [Recovering/Resolving]
  - Blood albumin decreased [None]
  - Oedema peripheral [None]
  - Haemoglobin decreased [Recovering/Resolving]
  - Fatigue [None]
  - Blood bilirubin increased [Recovering/Resolving]
  - Oedema peripheral [Recovered/Resolved]

NARRATIVE: CASE EVENT DATE: 201809
